FAERS Safety Report 9732954 (Version 2)
Quarter: 2013Q4

REPORT INFORMATION
  Report Type: Spontaneous
  Country: NZ (occurrence: NZ)
  Receive Date: 20131205
  Receipt Date: 20131209
  Transmission Date: 20140711
  Serious: Yes (Other)
  Sender: FDA-Public Use
  Company Number: NZ-PFIZER INC-2013343885

PATIENT
  Sex: Male

DRUGS (1)
  1. GENOTROPIN [Suspect]
     Indication: CHRONIC FATIGUE SYNDROME
     Dosage: UNK

REACTIONS (2)
  - Myocardial infarction [Recovering/Resolving]
  - Intentional drug misuse [Unknown]
